FAERS Safety Report 6402589-X (Version None)
Quarter: 2009Q4

REPORT INFORMATION
  Report Type: 
  Country: None (occurrence: None)
  Receive Date: 20091009
  Receipt Date: 20090930
  Transmission Date: 20100525
  Serious: Yes (Hospitalization)
  Sender: FDA-Public Use
  Company Number: ADR34752009

PATIENT
  Sex: Male

DRUGS (1)
  1. CIPROFLOXACIN [Suspect]
     Dosage: 1 G,  ORAL
     Route: 048

REACTIONS (4)
  - ALOPECIA [None]
  - BONE MARROW FAILURE [None]
  - PANCYTOPENIA [None]
  - STOMATITIS [None]
